FAERS Safety Report 10767560 (Version 2)
Quarter: 2015Q1

REPORT INFORMATION
  Report Type: Spontaneous
  Country: US (occurrence: US)
  Receive Date: 20150205
  Receipt Date: 20150323
  Transmission Date: 20150721
  Serious: Yes (Hospitalization)
  Sender: FDA-Public Use
  Company Number: US-009507513-1502USA001631

PATIENT
  Sex: Female

DRUGS (1)
  1. MIRALAX [Suspect]
     Active Substance: POLYETHYLENE GLYCOL 3350
     Indication: FAECALOMA
     Dosage: UNK, UNKNOWN
     Route: 048
     Dates: start: 2014

REACTIONS (6)
  - Off label use [Unknown]
  - Drug effect decreased [Unknown]
  - Hospitalisation [Unknown]
  - Unevaluable event [Unknown]
  - Drug prescribing error [Unknown]
  - Drug effect delayed [Unknown]

NARRATIVE: CASE EVENT DATE: 2014
